FAERS Safety Report 11036910 (Version 1)
Quarter: 2015Q2

REPORT INFORMATION
  Report Type: Spontaneous
  Country: US (occurrence: None)
  Receive Date: 20150415
  Receipt Date: 20150415
  Transmission Date: 20150821
  Serious: Yes (Disabling)
  Sender: FDA-Public Use
  Company Number: None

PATIENT
  Age: 54 Year
  Sex: Female
  Weight: 74.84 kg

DRUGS (2)
  1. SYNTHROID [Concomitant]
     Active Substance: LEVOTHYROXINE SODIUM
  2. LEVAQUIN [Suspect]
     Active Substance: LEVOFLOXACIN
     Indication: WHITE BLOOD CELLS URINE POSITIVE
     Dosage: ONE PILL
     Route: 048
     Dates: start: 20150114, end: 20150121

REACTIONS (3)
  - Rash [None]
  - Tinnitus [None]
  - Hearing impaired [None]

NARRATIVE: CASE EVENT DATE: 20150123
